FAERS Safety Report 19505761 (Version 1)
Quarter: 2021Q3

REPORT INFORMATION
  Report Type: Report from Study
  Country: CA (occurrence: CA)
  Receive Date: 20210708
  Receipt Date: 20210708
  Transmission Date: 20211014
  Serious: Yes (Hospitalization)
  Sender: FDA-Public Use
  Company Number: CA-HLS-202107851

PATIENT
  Age: 58 Year
  Sex: Male

DRUGS (6)
  1. SERTRALINE  HCL [Concomitant]
     Active Substance: SERTRALINE HYDROCHLORIDE
     Indication: PRODUCT USED FOR UNKNOWN INDICATION
     Dosage: TAKE 1 CAPSULE ONCE A DAILY AT BEDTIME.
     Route: 065
  2. CLOZARIL [Suspect]
     Active Substance: CLOZAPINE
     Indication: PRODUCT USED FOR UNKNOWN INDICATION
     Dosage: 2.5 MG TABLET AT BEDTIME (DOSE DECREASED)
     Route: 048
     Dates: start: 20000124
  3. TRIFLUOPERAZINE HCL [Concomitant]
     Indication: PRODUCT USED FOR UNKNOWN INDICATION
     Dosage: TAKE 1 TABLET AT BEDTIME
     Route: 065
     Dates: start: 20210313
  4. BUSPIRONE HCL [Concomitant]
     Active Substance: BUSPIRONE HYDROCHLORIDE
     Indication: PRODUCT USED FOR UNKNOWN INDICATION
     Dosage: TAKE 1 TABLET(S)  THREE TIMES A DAY
     Route: 065
     Dates: start: 20210212
  5. CLOZARIL [Suspect]
     Active Substance: CLOZAPINE
     Indication: PRODUCT USED FOR UNKNOWN INDICATION
     Dosage: TAKE 1 TABLET 3 TIMES AT BEDTIME.
     Route: 048
  6. ESOMOPRAZOLE MAGNESIUM [Concomitant]
     Indication: PRODUCT USED FOR UNKNOWN INDICATION
     Dosage: TAKE 1 TABLET ONCE DAILY
     Route: 048
     Dates: start: 20210313

REACTIONS (6)
  - Cardiac failure [Unknown]
  - Antipsychotic drug level therapeutic [Unknown]
  - Troponin T increased [Unknown]
  - Brain natriuretic peptide increased [Unknown]
  - Platelet count decreased [Unknown]
  - Myocarditis [Unknown]
